FAERS Safety Report 10391021 (Version 2)
Quarter: 2014Q3

REPORT INFORMATION
  Report Type: Spontaneous
  Country: CZ (occurrence: CZ)
  Receive Date: 20140818
  Receipt Date: 20140917
  Transmission Date: 20150326
  Serious: Yes (Hospitalization, Other)
  Sender: FDA-Public Use
  Company Number: CZ-TEVA-501631ISR

PATIENT
  Age: 17 Year
  Sex: Male

DRUGS (2)
  1. METFORMIN [Suspect]
     Active Substance: METFORMIN HYDROCHLORIDE
     Route: 048
  2. GLIMEPIRIDE. [Suspect]
     Active Substance: GLIMEPIRIDE
     Route: 048

REACTIONS (5)
  - Hemiparesis [Recovered/Resolved]
  - Generalised tonic-clonic seizure [Recovered/Resolved]
  - Hypoglycaemia [Recovered/Resolved]
  - Loss of consciousness [Recovered/Resolved]
  - Suicide attempt [Recovered/Resolved]
